FAERS Safety Report 18482018 (Version 2)
Quarter: 2020Q4

REPORT INFORMATION
  Report Type: Report from Study
  Country: US (occurrence: US)
  Receive Date: 20201109
  Receipt Date: 20201112
  Transmission Date: 20210114
  Serious: Yes (Life-Threatening, Disabling, Other)
  Sender: FDA-Public Use
  Company Number: US-GILEAD-2020-0494152

PATIENT
  Age: 63 Year
  Sex: Female
  Weight: 108.9 kg

DRUGS (70)
  1. TOCILIZUMAB. [Suspect]
     Active Substance: TOCILIZUMAB
     Indication: COVID-19 PNEUMONIA
     Dosage: UNK
     Route: 042
     Dates: start: 20200711
  2. ALBUTEROL [SALBUTAMOL] [Concomitant]
     Active Substance: ALBUTEROL
  3. MUCINEX [Concomitant]
     Active Substance: GUAIFENESIN
     Indication: NASAL CONGESTION
     Dosage: 600 MG
     Dates: start: 20200716, end: 20200802
  4. LUMASON [Concomitant]
     Active Substance: SULFUR HEXAFLUORIDE
     Dosage: 5 ML
     Dates: start: 20200730, end: 20200730
  5. LASIX [Concomitant]
     Active Substance: FUROSEMIDE
     Indication: OEDEMA
     Dosage: 20 MG
     Dates: start: 20200807, end: 20200807
  6. TUMS [Concomitant]
     Active Substance: CALCIUM CARBONATE
     Dates: start: 20200907
  7. TOCILIZUMAB. [Suspect]
     Active Substance: TOCILIZUMAB
     Dosage: UNK
     Route: 042
     Dates: start: 20200712
  8. LOVENOX [Concomitant]
     Active Substance: ENOXAPARIN SODIUM
     Indication: DEEP VEIN THROMBOSIS
     Dates: start: 20200711, end: 20200805
  9. LOVENOX [Concomitant]
     Active Substance: ENOXAPARIN SODIUM
     Dosage: 40 MG, QD
     Dates: start: 20200827, end: 20200830
  10. ZOSYN [Concomitant]
     Active Substance: PIPERACILLIN SODIUM\TAZOBACTAM SODIUM
     Indication: PERITONITIS
  11. NOREPINEPHRINE BITARTRATE. [Concomitant]
     Active Substance: NOREPINEPHRINE BITARTRATE
  12. MIRALAX [Concomitant]
     Active Substance: POLYETHYLENE GLYCOL 3350
     Indication: CONSTIPATION
     Dosage: 17 G
     Dates: start: 20200711, end: 20200808
  13. REMDESIVIR. [Suspect]
     Active Substance: REMDESIVIR
     Dosage: 200 MG, QD
     Route: 042
     Dates: start: 20200711
  14. LOVENOX [Concomitant]
     Active Substance: ENOXAPARIN SODIUM
     Dosage: 40 MG, QD
     Dates: start: 20200906
  15. TESSALON [Concomitant]
     Active Substance: BENZONATATE
     Dosage: 200 MG
     Dates: start: 20200712, end: 20200808
  16. MORPHINE [Concomitant]
     Active Substance: MORPHINE
     Indication: PAIN
     Dates: start: 20200711, end: 20200808
  17. COMBIVENT [Concomitant]
     Active Substance: ALBUTEROL SULFATE\IPRATROPIUM BROMIDE
  18. DIFLUCAN [Concomitant]
     Active Substance: FLUCONAZOLE
     Indication: ANTIFUNGAL PROPHYLAXIS
     Dates: start: 20200828, end: 20200830
  19. LEVOPHED [Concomitant]
     Active Substance: NOREPINEPHRINE BITARTRATE
     Indication: SEPSIS
     Dates: start: 20200827, end: 20200829
  20. TOPROL XL [Concomitant]
     Active Substance: METOPROLOL SUCCINATE
     Indication: HYPERTENSION
     Dosage: 25 MG
     Dates: start: 20200711
  21. VITAMIN D3 [Concomitant]
     Active Substance: CHOLECALCIFEROL
     Indication: VITAMIN D DEFICIENCY
     Dosage: 2000 U
     Dates: start: 20200711, end: 20200808
  22. TUMS [Concomitant]
     Active Substance: CALCIUM CARBONATE
     Indication: DYSPEPSIA
     Dates: start: 20200906, end: 20200906
  23. SODIUM PHOSPHATE [Concomitant]
     Active Substance: SODIUM PHOSPHATE
     Dosage: 20 OTHER
     Dates: start: 20200904, end: 20200904
  24. OXYCODONE [Concomitant]
     Active Substance: OXYCODONE
     Indication: PAIN
  25. HYDROCORTISONE. [Concomitant]
     Active Substance: HYDROCORTISONE
  26. FLUCONAZOLE. [Concomitant]
     Active Substance: FLUCONAZOLE
  27. ARIXTRA [Concomitant]
     Active Substance: FONDAPARINUX SODIUM
     Indication: THROMBOCYTOPENIA
     Dates: start: 20200830
  28. PIPERACILLIN AND TAZOBACTAM [Concomitant]
     Active Substance: PIPERACILLIN SODIUM\TAZOBACTAM SODIUM
  29. MUCINEX [Concomitant]
     Active Substance: GUAIFENESIN
     Indication: COUGH
  30. SOLU-MEDROL [Concomitant]
     Active Substance: METHYLPREDNISOLONE SODIUM SUCCINATE
     Indication: PNEUMONIA
     Dosage: 60 MG
     Dates: start: 20200731, end: 20200804
  31. OMNIPAQUE [Concomitant]
     Active Substance: IOHEXOL
     Dosage: 150 ML
     Dates: start: 20200831, end: 20200831
  32. MORPHINE [Concomitant]
     Active Substance: MORPHINE
     Indication: HEADACHE
  33. OXYCODONE [Concomitant]
     Active Substance: OXYCODONE
     Indication: ARTHRALGIA
     Dates: start: 20200711, end: 20200808
  34. FLEXERIL [Concomitant]
     Active Substance: CYCLOBENZAPRINE HYDROCHLORIDE
     Indication: MUSCLE SPASMS
     Dates: start: 20200814
  35. PREDNISONE. [Concomitant]
     Active Substance: PREDNISONE
  36. DELTASONE [Concomitant]
     Active Substance: PREDNISONE
     Indication: PNEUMONIA
     Dosage: 60 MG
     Dates: start: 20200807, end: 20200808
  37. SENOKOT [Concomitant]
     Active Substance: SENNOSIDES
     Indication: CONSTIPATION
     Dosage: 8.6 MG
     Dates: start: 20200716, end: 20200808
  38. OMNIPAQUE [Concomitant]
     Active Substance: IOHEXOL
     Dosage: 140 ML
     Dates: start: 20200905, end: 20200905
  39. MAGNESIUM SULFATE. [Concomitant]
     Active Substance: MAGNESIUM SULFATE
     Dosage: 2 G
     Dates: start: 20200903, end: 20200904
  40. TOCILIZUMAB. [Suspect]
     Active Substance: TOCILIZUMAB
     Dosage: UNK
     Route: 042
     Dates: start: 20200711
  41. DECADRON [Concomitant]
     Active Substance: DEXAMETHASONE
     Indication: RESPIRATORY FAILURE
     Dates: start: 20200714
  42. TESSALON [Concomitant]
     Active Substance: BENZONATATE
     Indication: COUGH
     Dosage: 200 MG, QD
  43. IMODIUM [Concomitant]
     Active Substance: LOPERAMIDE HYDROCHLORIDE
     Indication: DIARRHOEA
     Dates: start: 20200712, end: 20200808
  44. ZOSYN [Concomitant]
     Active Substance: PIPERACILLIN SODIUM\TAZOBACTAM SODIUM
     Indication: INTESTINAL PERFORATION
     Dates: start: 20200827, end: 20200828
  45. FLAGYL [Concomitant]
     Active Substance: METRONIDAZOLE\METRONIDAZOLE HYDROCHLORIDE
     Indication: INTESTINAL PERFORATION
     Dates: start: 20200829, end: 20200901
  46. FONDAPARINUX [Concomitant]
     Active Substance: FONDAPARINUX
     Dosage: 2.5 MG
  47. COMBIVENT RESPIMAT [Concomitant]
     Active Substance: ALBUTEROL SULFATE\IPRATROPIUM BROMIDE
     Indication: DYSPNOEA
     Dosage: 2 PUFF
     Dates: start: 20200805, end: 20200805
  48. LASIX [Concomitant]
     Active Substance: FUROSEMIDE
     Dosage: 40 MG
     Dates: start: 20200906, end: 20200908
  49. PERIDEX [CHLORHEXIDINE GLUCONATE] [Concomitant]
     Indication: DENTAL DISORDER PROPHYLAXIS
     Dosage: 15 ML
     Dates: start: 20200827, end: 20200828
  50. DIPRIVAN [Concomitant]
     Active Substance: PROPOFOL
     Indication: SEDATION
     Dosage: 30 OTHER
     Dates: start: 20200827, end: 20200828
  51. LACTATED RINGERS SOLUTION [Concomitant]
     Active Substance: CALCIUM CHLORIDE\POTASSIUM CHLORIDE\SODIUM CHLORIDE\SODIUM LACTATE
     Indication: HYPOTENSION
     Dosage: 50 OTHER
     Dates: start: 20200827, end: 20200831
  52. ROXICODONE [Concomitant]
     Active Substance: OXYCODONE HYDROCHLORIDE
     Indication: PAIN
     Dosage: 5 MG
     Dates: start: 20200904
  53. REMDESIVIR. [Suspect]
     Active Substance: REMDESIVIR
     Indication: COVID-19 PNEUMONIA
     Dosage: UNK
     Route: 042
     Dates: start: 20200711
  54. IMODIUM [Concomitant]
     Active Substance: LOPERAMIDE HYDROCHLORIDE
     Dates: start: 20200906
  55. OCEAN SALINE NASAL SPRAY [Concomitant]
     Active Substance: SODIUM CHLORIDE
     Indication: NASAL DRYNESS
     Dosage: 2 SPRAY
     Dates: start: 20200713, end: 20200808
  56. OXYGEN. [Concomitant]
     Active Substance: OXYGEN
     Indication: DYSPNOEA
     Dosage: 2 OTHERS
     Dates: start: 20200808
  57. ANCEF [Concomitant]
     Active Substance: CEFAZOLIN SODIUM
     Indication: ABDOMINAL INFECTION
     Dates: start: 20200828
  58. CIPRO [Concomitant]
     Active Substance: CIPROFLOXACIN HYDROCHLORIDE
     Indication: INTESTINAL PERFORATION
     Dates: start: 20200829, end: 20200830
  59. LOPRESSOR [Concomitant]
     Active Substance: METOPROLOL TARTRATE
     Indication: HYPERTENSION
     Dosage: 6.25 MG
     Dates: start: 20200901
  60. SOLU-MEDROL [Concomitant]
     Active Substance: METHYLPREDNISOLONE SODIUM SUCCINATE
     Dosage: 60 MG
     Dates: start: 20200804, end: 20200806
  61. DELTASONE [Concomitant]
     Active Substance: PREDNISONE
     Dosage: 30 MG
     Dates: start: 20200903
  62. HUMALOG [Concomitant]
     Active Substance: INSULIN LISPRO
     Indication: HYPERGLYCAEMIA
     Dosage: 1 U
     Dates: start: 20200828, end: 20200828
  63. SODIUM CHLORIDE. [Concomitant]
     Active Substance: SODIUM CHLORIDE
     Dosage: 500 ML
     Dates: start: 20200827, end: 20200827
  64. SODIUM CHLORIDE. [Concomitant]
     Active Substance: SODIUM CHLORIDE
     Dosage: 500 ML
     Dates: start: 20200904, end: 20200904
  65. ALBUMIN [Concomitant]
     Active Substance: ALBUMIN HUMAN
     Indication: SHOCK
     Dates: start: 20200829, end: 20200829
  66. VISINE [TETRYZOLINE HYDROCHLORIDE] [Concomitant]
     Indication: HYPERSENSITIVITY
     Dosage: 1 OTHER
     Dates: start: 20200715, end: 20200808
  67. SOLU-CORTEF [Concomitant]
     Active Substance: HYDROCORTISONE SODIUM SUCCINATE
     Indication: DYSPNOEA
     Dosage: 50 MG
     Dates: start: 20200827, end: 20200830
  68. DEFINITY [Concomitant]
     Active Substance: PERFLUTREN
     Dosage: 2 ML
     Dates: start: 20200827, end: 20200827
  69. POTASSIUM PHOSPHATE [POTASSIUM PHOSPHATE DIBASIC;POTASSIUM PHOSPHATE M [Concomitant]
     Dosage: 20 OTHER
     Dates: start: 20200901, end: 20200901
  70. ALDACTONE [Concomitant]
     Active Substance: SPIRONOLACTONE
     Dates: start: 20200906, end: 20200908

REACTIONS (5)
  - Gastric ulcer perforation [Not Recovered/Not Resolved]
  - Thrombocytopenia [Not Recovered/Not Resolved]
  - Abdominal sepsis [Recovered/Resolved]
  - Pulmonary fibrosis [Not Recovered/Not Resolved]
  - Septic shock [Recovered/Resolved]

NARRATIVE: CASE EVENT DATE: 20200826
